FAERS Safety Report 21890446 (Version 2)
Quarter: 2023Q1

REPORT INFORMATION
  Report Type: Spontaneous
  Country: PL (occurrence: PL)
  Receive Date: 20230120
  Receipt Date: 20230124
  Transmission Date: 20230418
  Serious: Yes (Life-Threatening, Other)
  Sender: FDA-Public Use
  Company Number: PL-KRKA-PL2023K00348LIT

PATIENT
  Age: 19 Year
  Sex: Male

DRUGS (8)
  1. CYTARABINE [Suspect]
     Active Substance: CYTARABINE
     Indication: High grade B-cell lymphoma Burkitt-like lymphoma
     Dosage: 4 CYCLES
  2. RITUXIMAB [Suspect]
     Active Substance: RITUXIMAB
     Indication: High grade B-cell lymphoma Burkitt-like lymphoma
     Dosage: CUMULATIVE DOSE: 2 CYCLES
  3. DOXORUBICIN HYDROCHLORIDE [Suspect]
     Active Substance: DOXORUBICIN HYDROCHLORIDE
     Indication: High grade B-cell lymphoma Burkitt-like lymphoma
     Dosage: CUMULATIVE DOSE: 2 CYCLES
  4. VINCRISTINE [Suspect]
     Active Substance: VINCRISTINE
     Indication: High grade B-cell lymphoma Burkitt-like lymphoma
     Dosage: CUMULATIVE DOSE: 2 CYCLES
  5. DEXAMETHASONE [Suspect]
     Active Substance: DEXAMETHASONE
     Indication: High grade B-cell lymphoma Burkitt-like lymphoma
     Dosage: 4 CYCLES
  6. METHOTREXATE [Suspect]
     Active Substance: METHOTREXATE
     Indication: High grade B-cell lymphoma Burkitt-like lymphoma
     Dosage: 4 CYCLES
  7. CYCLOPHOSPHAMIDE [Suspect]
     Active Substance: CYCLOPHOSPHAMIDE
     Indication: High grade B-cell lymphoma Burkitt-like lymphoma
     Dosage: CUMULATIVE DOSE: 2 CYCLES
  8. PREDNISOLONE [Suspect]
     Active Substance: PREDNISOLONE
     Dosage: CUMULATIVE DOSE: 2 CYCLES

REACTIONS (2)
  - Neutropenia [Unknown]
  - Myelosuppression [Unknown]
